FAERS Safety Report 10230590 (Version 1)
Quarter: 2014Q2

REPORT INFORMATION
  Report Type: Spontaneous
  Country: US (occurrence: None)
  Receive Date: 20140610
  Receipt Date: 20140610
  Transmission Date: 20141212
  Serious: Yes (Disabling)
  Sender: FDA-Public Use
  Company Number: None

PATIENT
  Age: 18 Year
  Sex: Female
  Weight: 88.45 kg

DRUGS (19)
  1. ABILIFY (ARIPIPRAZOLE) [Suspect]
     Indication: BIPOLAR DISORDER
     Dosage: STARTED 10MG 1 TAB ONCE DAILY, FINISHED 20MG 1 TAB ONCE DAILY
     Route: 048
     Dates: start: 1997
  2. GEODON [Suspect]
     Dosage: 1 CAP
     Dates: start: 2009, end: 2011
  3. SAPHRIS (ASENAPINE) [Suspect]
     Dates: start: 2011
  4. RISPERDAL (RISPERIDONE) [Suspect]
     Dates: start: 2011, end: 2013
  5. LATUDA (LURASIDONE) 40MG TABLET [Suspect]
     Dates: start: 2013, end: 2014
  6. SEROQUEL XR [Suspect]
     Dates: start: 201404, end: 201405
  7. VYVANSE [Concomitant]
  8. SEROQUEL [Concomitant]
  9. NADOLOL [Concomitant]
  10. RIZATRIPTAN [Concomitant]
  11. ACIDOPHILUS [Concomitant]
  12. CHARCOAL CUPS [Concomitant]
  13. PEPERMNT OIL CAPS [Concomitant]
  14. EXCEDRIN [Concomitant]
  15. IMODIUM [Concomitant]
  16. LOTRONEX [Concomitant]
  17. MARODOX [Concomitant]
  18. DEPO PROVERA [Concomitant]
  19. PREDNISOLONE [Concomitant]

REACTIONS (3)
  - Tooth loss [None]
  - Dry mouth [None]
  - Pain [None]
